FAERS Safety Report 7750374-9 (Version None)
Quarter: 2011Q3

REPORT INFORMATION
  Report Type: 
  Country: None (occurrence: None)
  Receive Date: 20110912
  Receipt Date: 20110831
  Transmission Date: 20111222
  Serious: Yes (Hospitalization)
  Sender: FDA-Public Use
  Company Number: 2011AT000318

PATIENT
  Age: 78 Year
  Sex: Male

DRUGS (5)
  1. ENOXAPARIN SODIUM [Concomitant]
  2. PROSTAVASIN (ALPROSTADIL) [Suspect]
     Indication: BLUE TOE SYNDROME
     Dosage: 40 UG;BID;IV
     Route: 042
     Dates: start: 20110822, end: 20110823
  3. PROVASTATIN (ALPROSTADIL) [Suspect]
  4. ASPIRIN [Concomitant]
  5. NOVALGIN /00039501/ [Concomitant]

REACTIONS (2)
  - ATRIOVENTRICULAR BLOCK SECOND DEGREE [None]
  - ATRIOVENTRICULAR BLOCK COMPLETE [None]
